FAERS Safety Report 20617570 (Version 1)
Quarter: 2022Q1

REPORT INFORMATION
  Report Type: Other
  Country: FR (occurrence: FR)
  Receive Date: 20220321
  Receipt Date: 20220321
  Transmission Date: 20220423
  Serious: Yes (Other)
  Sender: FDA-Public Use
  Company Number: FR-PHARMAAND-2022PHR00095

PATIENT
  Age: 16 Year
  Sex: Male
  Weight: 58 kg

DRUGS (4)
  1. PEGASYS [Suspect]
     Active Substance: PEGINTERFERON ALFA-2A
     Indication: Uveitis
     Dosage: 135 ?G, 1X/WEEK
     Route: 058
     Dates: start: 20211021, end: 20220115
  2. VALACYCLOVIR HYDROCHLORIDE [Suspect]
     Active Substance: VALACYCLOVIR HYDROCHLORIDE
     Indication: Varicella zoster virus infection
     Dosage: 4 DOSAGE FORM, 1X/DAY
     Route: 048
     Dates: start: 20211021, end: 20220114
  3. VALACYCLOVIR HYDROCHLORIDE [Suspect]
     Active Substance: VALACYCLOVIR HYDROCHLORIDE
     Dosage: 2 DOSAGE FORM, 1X/DAY
     Route: 048
     Dates: start: 20220115
  4. PREDNISONE [Concomitant]
     Active Substance: PREDNISONE
     Dosage: UNK

REACTIONS (3)
  - Hepatic cytolysis [Recovered/Resolved]
  - Neutropenia [Recovered/Resolved]
  - Off label use [Recovered/Resolved]

NARRATIVE: CASE EVENT DATE: 20211021
